FAERS Safety Report 7513419-7 (Version None)
Quarter: 2011Q2

REPORT INFORMATION
  Report Type: 
  Country: None (occurrence: None)
  Receive Date: 20110531
  Receipt Date: 20110518
  Transmission Date: 20111010
  Serious: Yes (Hospitalization, Other)
  Sender: FDA-Public Use
  Company Number: US-UCBSA-031030

PATIENT
  Sex: Male

DRUGS (6)
  1. XYZAL [Suspect]
     Dosage: 2.5 MG/5 ML
     Route: 048
     Dates: start: 20101001, end: 20110310
  2. ADVAIR DISKUS 100/50 [Concomitant]
     Indication: ASTHMA
  3. SINGULAIR [Concomitant]
     Indication: ASTHMA
  4. XOPENEX [Concomitant]
     Indication: ASTHMA
  5. ANTIBIOTICS (UNSPECIFIED) [Concomitant]
  6. PREDNISOLONE [Concomitant]
     Indication: STEROID THERAPY

REACTIONS (4)
  - BLOOD IMMUNOGLOBULIN G DECREASED [None]
  - PNEUMONIA [None]
  - ASTHMA [None]
  - NASOPHARYNGITIS [None]
